FAERS Safety Report 5121019-1 (Version None)
Quarter: 2006Q4

REPORT INFORMATION
  Report Type: 
  Country: None (occurrence: None)
  Receive Date: 20061005
  Receipt Date: 20060412
  Transmission Date: 20070319
  Serious: Yes (Hospitalization, Other)
  Sender: FDA-Public Use
  Company Number: US-AMGEN-STX176363

PATIENT
  Sex: Female

DRUGS (9)
  1. ENBREL [Suspect]
     Indication: RHEUMATOID ARTHRITIS
     Route: 058
     Dates: start: 20030417
  2. METHOTREXATE [Concomitant]
  3. PREDNISONE TAB [Concomitant]
  4. IBUPROFEN [Concomitant]
  5. CORTICOSTEROID NOS [Concomitant]
  6. PROTONIX [Concomitant]
  7. ELAVIL [Concomitant]
  8. SYNTHROID [Concomitant]
  9. CELEXA [Concomitant]

REACTIONS (11)
  - ABASIA [None]
  - ANAEMIA OF CHRONIC DISEASE [None]
  - ARTHRITIS BACTERIAL [None]
  - ASTHENIA [None]
  - CONDITION AGGRAVATED [None]
  - DIVERTICULAR PERFORATION [None]
  - FATIGUE [None]
  - MALAISE [None]
  - PYREXIA [None]
  - RHEUMATOID ARTHRITIS [None]
  - SYNOVIAL CYST [None]
